FAERS Safety Report 21936519 (Version 1)
Quarter: 2023Q1

REPORT INFORMATION
  Report Type: Spontaneous
  Country: FR (occurrence: FR)
  Receive Date: 20230201
  Receipt Date: 20230201
  Transmission Date: 20230417
  Serious: Yes (Other)
  Sender: FDA-Public Use
  Company Number: FR-GRUNENTHAL-2022-110339

PATIENT
  Age: 58 Year
  Sex: Female

DRUGS (5)
  1. ESOMEPRAZOLE [Interacting]
     Active Substance: ESOMEPRAZOLE
     Indication: Product used for unknown indication
     Dosage: UNK
     Route: 065
  2. CANNABIDIOL [Interacting]
     Active Substance: CANNABIDIOL
     Indication: Restless legs syndrome
     Dosage: UNK
     Route: 065
  3. CANNABIDIOL [Interacting]
     Active Substance: CANNABIDIOL
     Dosage: UNK
     Route: 065
  4. AMITRIPTYLINE [Concomitant]
     Active Substance: AMITRIPTYLINE
     Indication: Product used for unknown indication
     Dosage: UNK
     Route: 065
  5. ZOLMITRIPTAN [Concomitant]
     Active Substance: ZOLMITRIPTAN
     Indication: Product used for unknown indication
     Dosage: UNK
     Route: 065

REACTIONS (3)
  - Retinal haemorrhage [Unknown]
  - Drug interaction [Unknown]
  - Retinal tear [Unknown]
